FAERS Safety Report 5102510-0 (Version None)
Quarter: 2006Q3

REPORT INFORMATION
  Report Type: 
  Country: None (occurrence: None)
  Receive Date: 20060908
  Receipt Date: 20060830
  Transmission Date: 20061208
  Serious: Yes (Hospitalization, Other)
  Sender: FDA-Public Use
  Company Number: US-0503113986

PATIENT
  Age: 58 Year
  Sex: Female

DRUGS (15)
  1. CYMBALTA [Suspect]
     Indication: NEUROPATHY PERIPHERAL
     Dates: start: 20050114, end: 20050119
  2. MORPHINE [Concomitant]
  3. PHENERGAN (PROMETHAZINE HYDROCHLORIDE) [Concomitant]
  4. DIOVAN [Concomitant]
  5. DURAGESIC-100 [Concomitant]
  6. DIFLUCAN [Concomitant]
  7. LEVOTHYROXINE SODIUM [Concomitant]
  8. ATENOLOL [Concomitant]
  9. CHLORTHALIDONE [Concomitant]
  10. XANAX [Concomitant]
  11. PROTONIX [Concomitant]
  12. MYCOSTATIN [Concomitant]
  13. XOPENEX [Concomitant]
  14. ATROVENT [Concomitant]
  15. ACETAMINOPHEN [Concomitant]

REACTIONS (37)
  - ACTIVATED PARTIAL THROMBOPLASTIN TIME PROLONGED [None]
  - ANXIETY [None]
  - ASTHENIA [None]
  - ATELECTASIS [None]
  - BALANCE DISORDER [None]
  - BLOOD BICARBONATE DECREASED [None]
  - BLOOD CHLORIDE DECREASED [None]
  - BLOOD GLUCOSE INCREASED [None]
  - BLOOD MAGNESIUM INCREASED [None]
  - BURNING SENSATION [None]
  - CEREBROVASCULAR ACCIDENT [None]
  - DEHYDRATION [None]
  - DIZZINESS [None]
  - DRUG INTERACTION [None]
  - GASTRIC ULCER [None]
  - GASTRITIS [None]
  - HAEMATOCRIT DECREASED [None]
  - HAEMOGLOBIN DECREASED [None]
  - HYPERCAPNIA [None]
  - HYPOAESTHESIA [None]
  - HYPOTENSION [None]
  - MALAISE [None]
  - MYALGIA [None]
  - MYOCLONUS [None]
  - NAUSEA [None]
  - NERVE INJURY [None]
  - OCCULT BLOOD POSITIVE [None]
  - PLATELET COUNT DECREASED [None]
  - PYREXIA [None]
  - RED BLOOD CELLS URINE POSITIVE [None]
  - RENAL FAILURE ACUTE [None]
  - RESPIRATORY ACIDOSIS [None]
  - RESPIRATORY FAILURE [None]
  - RHABDOMYOLYSIS [None]
  - VISUAL DISTURBANCE [None]
  - VOMITING [None]
  - WHITE BLOOD CELLS URINE POSITIVE [None]
